FAERS Safety Report 8361006-3 (Version None)
Quarter: 2012Q2

REPORT INFORMATION
  Report Type: 
  Country: None (occurrence: None)
  Receive Date: 20120515
  Receipt Date: 20120501
  Transmission Date: 20120825
  Serious: Yes (Other)
  Sender: FDA-Public Use
  Company Number: US-ROCHE-1056268

PATIENT
  Age: 51 Year
  Sex: Male
  Weight: 90.6 kg

DRUGS (15)
  1. GS 9451 (NS3 PROTEASE INHIBITOR) [Suspect]
     Indication: HEPATITIS C
     Route: 048
     Dates: start: 20111229, end: 20120118
  2. ASPIRIN [Concomitant]
  3. GS 5885 (HCV NS5A INHIBITOR) [Suspect]
     Indication: HEPATITIS C
     Dosage: DF
     Dates: start: 20111229, end: 20120118
  4. ASPIRIN [Concomitant]
  5. CELEXA [Concomitant]
  6. COPEGUS [Suspect]
     Indication: HEPATITIS C
     Route: 048
     Dates: start: 20111229, end: 20120118
  7. COPEGUS [Suspect]
     Route: 048
     Dates: start: 20120119, end: 20120313
  8. GS 5885 (HCV NS5A INHIBITOR) [Suspect]
     Dates: start: 20120119, end: 20120313
  9. BLINDED TEGOBUVIR [Suspect]
     Indication: HEPATITIS C
     Route: 048
     Dates: start: 20111229, end: 20120118
  10. METOPROLOL TARTRATE [Concomitant]
  11. TYLENOL (CAPLET) [Concomitant]
  12. GS 9451 (NS3 PROTEASE INHIBITOR) [Suspect]
     Dates: start: 20120119, end: 20120313
  13. PEGASYS [Suspect]
     Indication: HEPATITIS C
     Dates: start: 20120119, end: 20120309
  14. SULINDAC [Concomitant]
  15. AZITHROMYCIN [Concomitant]

REACTIONS (5)
  - DECREASED APPETITE [None]
  - HYPOGEUSIA [None]
  - VISUAL IMPAIRMENT [None]
  - DYSPEPSIA [None]
  - DIZZINESS [None]
